FAERS Safety Report 8869381 (Version 1)
Quarter: 2012Q4

REPORT INFORMATION
  Report Type: Spontaneous
  Country: US (occurrence: None)
  Receive Date: 20121025
  Receipt Date: 20121025
  Transmission Date: 20130627
  Serious: Yes (Other)
  Sender: FDA-Public Use
  Company Number: None

PATIENT
  Age: 21 Year
  Sex: Female
  Weight: 63.5 kg

DRUGS (1)
  1. DEXAMETHASONE [Suspect]
     Indication: CONGENITAL ADRENAL HYPERPLASIA
     Dosage: 0.75 mg QD po
     Route: 048
     Dates: start: 20111127, end: 20120315

REACTIONS (1)
  - Breast mass [None]
